FAERS Safety Report 10035684 (Version 3)
Quarter: 2015Q3

REPORT INFORMATION
  Report Type: Spontaneous
  Country: US (occurrence: US)
  Receive Date: 20140325
  Receipt Date: 20150713
  Transmission Date: 20151125
  Serious: Yes (Hospitalization)
  Sender: FDA-Public Use
  Company Number: US-GLAXOSMITHKLINE-A1064639A

PATIENT
  Sex: Female

DRUGS (2)
  1. METOPROLOL [Suspect]
     Active Substance: METOPROLOL
     Indication: PRODUCT USED FOR UNKNOWN INDICATION
     Dosage: UNK, U
     Route: 065
     Dates: end: 2014
  2. COREG CR [Suspect]
     Active Substance: CARVEDILOL PHOSPHATE
     Indication: CARDIAC DISORDER
     Dosage: 40 MG UNKNOWN DOSING
     Route: 065
     Dates: start: 20090206

REACTIONS (4)
  - Fracture [Unknown]
  - Drug ineffective [Unknown]
  - Fall [Unknown]
  - Thrombosis [Unknown]
